FAERS Safety Report 16382583 (Version 3)
Quarter: 2019Q4

REPORT INFORMATION
  Report Type: Spontaneous
  Country: US (occurrence: US)
  Receive Date: 20190603
  Receipt Date: 20191016
  Transmission Date: 20200122
  Serious: Yes (Other)
  Sender: FDA-Public Use
  Company Number: US-ASTRAZENECA-2018SF26187

PATIENT
  Age: 26514 Day
  Sex: Female

DRUGS (44)
  1. GABAPENTIN. [Concomitant]
     Active Substance: GABAPENTIN
  2. HYDROCODONE BITARTRATE AND ACETAMINOPHEN [Concomitant]
     Active Substance: ACETAMINOPHEN\HYDROCODONE BITARTRATE
  3. CITALOPRAM [Concomitant]
     Active Substance: CITALOPRAM HYDROBROMIDE
  4. PROAIR HFA [Concomitant]
     Active Substance: ALBUTEROL SULFATE
  5. COLCHICINE. [Concomitant]
     Active Substance: COLCHICINE
  6. OMEGA 3 [Concomitant]
     Active Substance: OMEGA-3 FATTY ACIDS
  7. ZANTAC [Concomitant]
     Active Substance: RANITIDINE HYDROCHLORIDE
  8. EVENING PRIMROSE [Concomitant]
  9. NEXIUM [Suspect]
     Active Substance: ESOMEPRAZOLE MAGNESIUM
     Route: 048
     Dates: start: 2002, end: 2016
  10. ADVAIR HFA [Concomitant]
     Active Substance: FLUTICASONE PROPIONATE\SALMETEROL XINAFOATE
  11. FLUCONAZOLE. [Concomitant]
     Active Substance: FLUCONAZOLE
  12. MINOCYCLINE [Concomitant]
     Active Substance: MINOCYCLINE HYDROCHLORIDE
  13. MAGNESIUM OXIDE. [Concomitant]
     Active Substance: MAGNESIUM OXIDE
  14. FENOFIBRATE. [Concomitant]
     Active Substance: FENOFIBRATE
  15. CREON [Concomitant]
     Active Substance: PANCRELIPASE AMYLASE\PANCRELIPASE LIPASE\PANCRELIPASE PROTEASE
  16. AMLODIPINE [Concomitant]
     Active Substance: AMLODIPINE BESYLATE
  17. NITROFURANTOIN. [Concomitant]
     Active Substance: NITROFURANTOIN
  18. ATENOLOL. [Concomitant]
     Active Substance: ATENOLOL
  19. ALPRAZOLAM. [Concomitant]
     Active Substance: ALPRAZOLAM
  20. CARAFATE [Concomitant]
     Active Substance: SUCRALFATE
  21. PROTONIX [Suspect]
     Active Substance: PANTOPRAZOLE SODIUM
     Dosage: GENERIC
     Route: 065
     Dates: start: 20131201
  22. METHYLPREDNISOLONE. [Concomitant]
     Active Substance: METHYLPREDNISOLONE
  23. LEVOFLOXACIN. [Concomitant]
     Active Substance: LEVOFLOXACIN
  24. AMOXICILLINE [Concomitant]
     Active Substance: AMOXICILLIN
  25. GEMFIBROZIL. [Concomitant]
     Active Substance: GEMFIBROZIL
  26. RABEPRAZOLE [Concomitant]
     Active Substance: RABEPRAZOLE
  27. CALCITRIOL. [Concomitant]
     Active Substance: CALCITRIOL
  28. ONDANSETRON [Concomitant]
     Active Substance: ONDANSETRON
  29. METRONIDAZOLE. [Concomitant]
     Active Substance: METRONIDAZOLE
  30. PRILOSEC [Suspect]
     Active Substance: OMEPRAZOLE MAGNESIUM
     Route: 048
     Dates: start: 2002, end: 2016
  31. PREVACID [Suspect]
     Active Substance: LANSOPRAZOLE
     Route: 065
     Dates: start: 2002, end: 2016
  32. FUROSEMIDE. [Concomitant]
     Active Substance: FUROSEMIDE
  33. CIPROFLOXACIN. [Concomitant]
     Active Substance: CIPROFLOXACIN
  34. TRAMADOL. [Concomitant]
     Active Substance: TRAMADOL
  35. DOXYCYCLINE. [Concomitant]
     Active Substance: DOXYCYCLINE
  36. ASPIRIN. [Concomitant]
     Active Substance: ASPIRIN
  37. FLEXERIL [Concomitant]
     Active Substance: CYCLOBENZAPRINE HYDROCHLORIDE
  38. PROTONIX [Suspect]
     Active Substance: PANTOPRAZOLE SODIUM
     Route: 065
     Dates: start: 2002, end: 2016
  39. RANITIDINE. [Concomitant]
     Active Substance: RANITIDINE
  40. CEFUROXIME. [Concomitant]
     Active Substance: CEFUROXIME
  41. CYCLOBENZAPRINE. [Concomitant]
     Active Substance: CYCLOBENZAPRINE
  42. METOCLOPRAMIDE. [Concomitant]
     Active Substance: METOCLOPRAMIDE
  43. VITAMIN D [Concomitant]
     Active Substance: VITAMIN D NOS
  44. DUREZOL [Concomitant]
     Active Substance: DIFLUPREDNATE

REACTIONS (3)
  - Renal failure [Unknown]
  - Chronic kidney disease [Unknown]
  - Acute kidney injury [Unknown]

NARRATIVE: CASE EVENT DATE: 20151116
